FAERS Safety Report 17564668 (Version 3)
Quarter: 2020Q2

REPORT INFORMATION
  Report Type: Report from Study
  Country: US (occurrence: US)
  Receive Date: 20200320
  Receipt Date: 20200423
  Transmission Date: 20200713
  Serious: Yes (Hospitalization)
  Sender: FDA-Public Use
  Company Number: US-ROCHE-2565498

PATIENT
  Sex: Male

DRUGS (2)
  1. ESBRIET [Suspect]
     Active Substance: PIRFENIDONE
     Indication: IDIOPATHIC PULMONARY FIBROSIS
     Route: 048
  2. ESBRIET [Suspect]
     Active Substance: PIRFENIDONE
     Indication: MANTLE CELL LYMPHOMA

REACTIONS (5)
  - Neoplasm malignant [Unknown]
  - Intentional product use issue [Unknown]
  - Weight decreased [Unknown]
  - Drug intolerance [Unknown]
  - Choking [Unknown]
